FAERS Safety Report 23931983 (Version 1)
Quarter: 2024Q2

REPORT INFORMATION
  Report Type: Other
  Country: CA (occurrence: CA)
  Receive Date: 20240603
  Receipt Date: 20240603
  Transmission Date: 20240716
  Serious: No
  Sender: FDA-Public Use
  Company Number: CA-TOLMAR, INC.-24CA048420

PATIENT
  Sex: Male

DRUGS (2)
  1. ELIGARD [Suspect]
     Active Substance: LEUPROLIDE ACETATE
     Indication: Prostate cancer
     Dosage: 45 MILLIGRAM, Q 6 MONTH
     Route: 058
     Dates: start: 20231023
  2. ELIGARD [Suspect]
     Active Substance: LEUPROLIDE ACETATE
     Indication: Prostate cancer
     Dosage: UNK

REACTIONS (9)
  - Pain in jaw [Unknown]
  - Pain in extremity [Unknown]
  - Balance disorder [Unknown]
  - Hypoaesthesia [Unknown]
  - Dizziness [Unknown]
  - Headache [Unknown]
  - Blood pressure decreased [Unknown]
  - Fatigue [Unknown]
  - Asthenia [Unknown]
